FAERS Safety Report 18867524 (Version 3)
Quarter: 2021Q1

REPORT INFORMATION
  Report Type: Report from Study
  Country: CN (occurrence: CN)
  Receive Date: 20210209
  Receipt Date: 20210302
  Transmission Date: 20210420
  Serious: Yes (Other)
  Sender: FDA-Public Use
  Company Number: CN-DSJP-DSJ-2021-102970

PATIENT
  Age: 33 Year
  Sex: Female
  Weight: 55 kg

DRUGS (3)
  1. OLMESARTAN MEDOXOMIL. [Suspect]
     Active Substance: OLMESARTAN MEDOXOMIL
     Dosage: 20 MG, SINGLE
     Route: 048
     Dates: start: 20201231, end: 20201231
  2. PROGESTERONE. [Concomitant]
     Active Substance: PROGESTERONE
     Indication: ABORTION SPONTANEOUS
     Dosage: 100 MG, BID
     Route: 048
     Dates: start: 20210111, end: 20210113
  3. OLMESARTAN MEDOXOMIL. [Suspect]
     Active Substance: OLMESARTAN MEDOXOMIL
     Indication: CLINICAL TRIAL PARTICIPANT
     Dosage: 20 MG, SINGLE
     Route: 048
     Dates: start: 20210104, end: 20210104

REACTIONS (2)
  - Abortion spontaneous [Recovered/Resolved]
  - Exposure during pregnancy [Unknown]

NARRATIVE: CASE EVENT DATE: 202101
